FAERS Safety Report 21902991 (Version 1)
Quarter: 2023Q1

REPORT INFORMATION
  Report Type: Spontaneous
  Country: IT (occurrence: IT)
  Receive Date: 20230124
  Receipt Date: 20230124
  Transmission Date: 20230417
  Serious: Yes (Other)
  Sender: FDA-Public Use
  Company Number: None

PATIENT
  Age: 74 Year
  Sex: Female
  Weight: 54 kg

DRUGS (1)
  1. SILDENAFIL [Suspect]
     Active Substance: SILDENAFIL
     Indication: Pulmonary arterial hypertension
     Dosage: 20 MG ORAL FOR ONE DAY; THE DRUG HAS BEEN SUSPENDED AND HAS BEEN RESTARTED SYMPTOMS RE-APPEARED AFTE
     Route: 048
     Dates: start: 20221114, end: 20221115

REACTIONS (3)
  - Hypotension [Recovered/Resolved]
  - Flushing [Recovered/Resolved]
  - Vertigo [Recovered/Resolved]

NARRATIVE: CASE EVENT DATE: 20221114
